FAERS Safety Report 5587595-X (Version None)
Quarter: 2008Q1

REPORT INFORMATION
  Report Type: 
  Country: None (occurrence: None)
  Receive Date: 20080110
  Receipt Date: 20071217
  Transmission Date: 20080703
  Serious: Yes (Other)
  Sender: FDA-Public Use
  Company Number: HK-MERCK-0712HKG00010

PATIENT
  Age: 49 Year
  Sex: Female

DRUGS (2)
  1. DECADRON [Suspect]
     Indication: IDIOPATHIC THROMBOCYTOPENIC PURPURA
     Route: 065
     Dates: start: 20030901, end: 20030901
  2. DECADRON [Suspect]
     Route: 065
     Dates: start: 20060101, end: 20060101

REACTIONS (1)
  - IDIOPATHIC THROMBOCYTOPENIC PURPURA [None]
